FAERS Safety Report 22929009 (Version 14)
Quarter: 2025Q2

REPORT INFORMATION
  Report Type: Spontaneous
  Country: JP (occurrence: JP)
  Receive Date: 20230911
  Receipt Date: 20250409
  Transmission Date: 20250716
  Serious: Yes (Life-Threatening, Hospitalization, Other)
  Sender: BRISTOL MYERS SQUIBB
  Company Number: JP-BRISTOL-MYERS SQUIBB COMPANY-2023-127244

PATIENT
  Age: 75 Year
  Sex: Male
  Weight: 57.5 kg

DRUGS (5)
  1. YERVOY [Suspect]
     Active Substance: IPILIMUMAB
     Indication: Non-small cell lung cancer recurrent
     Route: 041
     Dates: start: 20230725
  2. YERVOY [Suspect]
     Active Substance: IPILIMUMAB
     Route: 041
     Dates: start: 202308
  3. OPDIVO [Suspect]
     Active Substance: NIVOLUMAB
     Indication: Non-small cell lung cancer recurrent
     Route: 041
     Dates: start: 20230725, end: 20230815
  4. OPDIVO [Suspect]
     Active Substance: NIVOLUMAB
     Route: 041
  5. CRESTOR [Concomitant]
     Active Substance: ROSUVASTATIN CALCIUM
     Indication: Product used for unknown indication
     Route: 048

REACTIONS (25)
  - Cytokine release syndrome [Recovered/Resolved]
  - Renal impairment [Not Recovered/Not Resolved]
  - Loss of consciousness [Recovered/Resolved]
  - Cellulitis [Unknown]
  - Nephrogenic anaemia [Unknown]
  - Pyrexia [Recovered/Resolved]
  - Joint swelling [Unknown]
  - Dysuria [Unknown]
  - Post procedural infection [Unknown]
  - Pain in extremity [Unknown]
  - Malaise [Unknown]
  - Hepatic function abnormal [Unknown]
  - Cytopenia [Recovered/Resolved]
  - Blood corticotrophin decreased [Unknown]
  - Platelet count decreased [Unknown]
  - Red blood cell count decreased [Unknown]
  - White blood cell count decreased [Unknown]
  - Drain site complication [Unknown]
  - Tenderness [Unknown]
  - Erythema [Unknown]
  - Peripheral swelling [Unknown]
  - Disseminated intravascular coagulation [Unknown]
  - Bacteraemia [Unknown]
  - Liver disorder [Recovered/Resolved]
  - Bacterial infection [Unknown]

NARRATIVE: CASE EVENT DATE: 20230817
